FAERS Safety Report 11626013 (Version 1)
Quarter: 2015Q4

REPORT INFORMATION
  Report Type: Spontaneous
  Country: US (occurrence: US)
  Receive Date: 20151013
  Receipt Date: 20151013
  Transmission Date: 20160304
  Serious: Yes (Other)
  Sender: FDA-Public Use
  Company Number: US-TEVA-599830USA

PATIENT
  Sex: Female

DRUGS (1)
  1. COPAXONE [Suspect]
     Active Substance: GLATIRAMER ACETATE
     Dosage: UNKNOWN FORM STRENGTH
     Route: 065

REACTIONS (6)
  - Alopecia [Unknown]
  - Injection site necrosis [Unknown]
  - Memory impairment [Unknown]
  - Fungal infection [Unknown]
  - Mental disorder [Unknown]
  - Musculoskeletal disorder [Unknown]
